FAERS Safety Report 8063295-1 (Version None)
Quarter: 2012Q1

REPORT INFORMATION
  Report Type: 
  Country: None (occurrence: None)
  Receive Date: 20120123
  Receipt Date: 20120123
  Transmission Date: 20120608
  Serious: Yes (Death, Disabling, Other)
  Sender: FDA-Public Use
  Company Number: PHHY2011AU78916

PATIENT
  Sex: Female

DRUGS (3)
  1. OXYCODONE HCL [Suspect]
     Indication: CANCER PAIN
     Dosage: 10 MG, BID
     Dates: start: 20080830
  2. LETROZOLE [Suspect]
     Indication: BREAST CANCER
     Dosage: 2.5 MG, DAILY
     Dates: start: 20080725, end: 20081218
  3. PANTOPRAZOLE [Suspect]
     Indication: VOMITING
     Dosage: 40 MG, UNK
     Dates: start: 20090331

REACTIONS (4)
  - NEOPLASM PROGRESSION [None]
  - ASCITES [None]
  - PLEURAL EFFUSION [None]
  - NEOPLASM MALIGNANT [None]
